FAERS Safety Report 13819054 (Version 1)
Quarter: 2017Q3

REPORT INFORMATION
  Report Type: Report from Study
  Country: US (occurrence: US)
  Receive Date: 20170731
  Receipt Date: 20170731
  Transmission Date: 20171127
  Serious: No
  Sender: FDA-Public Use
  Company Number: US-EXELIXIS-CABO-17007931

PATIENT
  Sex: Male

DRUGS (16)
  1. LATANOPROST. [Concomitant]
     Active Substance: LATANOPROST
  2. LOVASTATIN. [Concomitant]
     Active Substance: LOVASTATIN
  3. DILTIAZEM. [Concomitant]
     Active Substance: DILTIAZEM
  4. IPRATROPIUM [Concomitant]
     Active Substance: IPRATROPIUM
  5. OXYCODONE [Concomitant]
     Active Substance: OXYCODONE
  6. CABOMETYX [Suspect]
     Active Substance: CABOZANTINIB S-MALATE
     Indication: PRODUCT USED FOR UNKNOWN INDICATION
     Dosage: 40 MG, QD
     Route: 048
     Dates: start: 20161105, end: 20170103
  7. DRONABINOL. [Concomitant]
     Active Substance: DRONABINOL
  8. MAGNESIUM [Concomitant]
     Active Substance: MAGNESIUM
  9. QUINAPRIL. [Concomitant]
     Active Substance: QUINAPRIL
  10. GLIPIZIDE. [Concomitant]
     Active Substance: GLIPIZIDE
  11. FLUTICASONE. [Concomitant]
     Active Substance: FLUTICASONE
  12. POLYETHYLENE [Concomitant]
     Active Substance: HIGH DENSITY POLYETHYLENE
  13. TRAZODONE [Concomitant]
     Active Substance: TRAZODONE HYDROCHLORIDE
  14. MONTELUKAST [Concomitant]
     Active Substance: MONTELUKAST SODIUM
  15. BECLOMETHASONE [Concomitant]
     Active Substance: BECLOMETHASONE
  16. WARFARIN [Concomitant]
     Active Substance: WARFARIN

REACTIONS (1)
  - Feeling abnormal [Unknown]
